FAERS Safety Report 11448434 (Version 1)
Quarter: 2015Q3

REPORT INFORMATION
  Report Type: Spontaneous
  Country: IT (occurrence: IT)
  Receive Date: 20150902
  Receipt Date: 20150902
  Transmission Date: 20151125
  Serious: Yes (Hospitalization)
  Sender: FDA-Public Use
  Company Number: IT-BAYER-2015-409956

PATIENT
  Age: 73 Year
  Sex: Female

DRUGS (2)
  1. CARDIOASPIRIN [Suspect]
     Active Substance: ASPIRIN
     Dosage: 100 MG, UNK
     Route: 048
  2. LACIPIL [Concomitant]
     Active Substance: LACIDIPINE

REACTIONS (5)
  - Rectal haemorrhage [Recovered/Resolved]
  - Asthenia [Recovered/Resolved]
  - Gastric ulcer [Recovered/Resolved]
  - Melaena [Recovered/Resolved]
  - Erosive duodenitis [Recovered/Resolved]

NARRATIVE: CASE EVENT DATE: 20131020
